FAERS Safety Report 7548320-6 (Version None)
Quarter: 2011Q2

REPORT INFORMATION
  Report Type: 
  Country: None (occurrence: None)
  Receive Date: 20110608
  Receipt Date: 20110525
  Transmission Date: 20111010
  Serious: Yes (Death)
  Sender: FDA-Public Use
  Company Number: 2011MA006556

PATIENT
  Age: 63 Year
  Sex: Female

DRUGS (2)
  1. DICLOFENAC SODIUM [Suspect]
     Indication: BACK PAIN
     Dosage: ;PO
     Route: 048
     Dates: start: 20090901, end: 20100301
  2. TRIMETHOPRIM [Concomitant]

REACTIONS (1)
  - SUBACUTE HEPATIC FAILURE [None]
